FAERS Safety Report 22916793 (Version 2)
Quarter: 2023Q4

REPORT INFORMATION
  Report Type: Report from Study
  Country: BR (occurrence: BR)
  Receive Date: 20230907
  Receipt Date: 20231218
  Transmission Date: 20240109
  Serious: Yes (Life-Threatening, Other)
  Sender: FDA-Public Use
  Company Number: BR-ABBVIE-4333931

PATIENT
  Sex: Male
  Weight: 57 kg

DRUGS (4)
  1. RINVOQ [Suspect]
     Active Substance: UPADACITINIB
     Indication: Dermatitis atopic
     Dosage: 1 DAILY
     Route: 048
     Dates: start: 20220822, end: 20230125
  2. BILASTINE [Concomitant]
     Active Substance: BILASTINE
     Indication: Allergy prophylaxis
  3. ENALAPRIL [Concomitant]
     Active Substance: ENALAPRIL
     Indication: Blood pressure measurement
     Dosage: FORM STRENGTH: 10 MILLIGRAM?FREQUENCY 12/12
  4. POLYETHYLENE GLYCOL [Suspect]
     Active Substance: POLYETHYLENE GLYCOL
     Indication: Product used for unknown indication
     Route: 065

REACTIONS (9)
  - Lymphadenopathy [Not Recovered/Not Resolved]
  - Body tinea [Unknown]
  - General symptom [Unknown]
  - Adverse drug reaction [Unknown]
  - Adverse drug reaction [Unknown]
  - Dermatitis atopic [Unknown]
  - Immunodeficiency [Unknown]
  - Feeling hot [Unknown]
  - Pyrexia [Not Recovered/Not Resolved]
